FAERS Safety Report 4884430-X (Version None)
Quarter: 2006Q1

REPORT INFORMATION
  Report Type: 
  Country: None (occurrence: None)
  Receive Date: 20060117
  Receipt Date: 20060117
  Transmission Date: 20060701
  Serious: Yes (Hospitalization)
  Sender: FDA-Public Use
  Company Number: None

PATIENT
  Age: 49 Year
  Sex: Male

DRUGS (6)
  1. PROLEUKIN [Suspect]
     Indication: NEOPLASM MALIGNANT
     Dosage: 5.5 MILLION UNITS Q 8 HOURS IV X 14 DOSES
     Route: 042
     Dates: start: 20040212, end: 20040216
  2. TEQUIN [Concomitant]
  3. NACL/NAPO4 [Concomitant]
  4. NACL/KCL/MGSO4 [Concomitant]
  5. VANCOMYCIN [Concomitant]
  6. PROTONIX [Concomitant]

REACTIONS (1)
  - CEREBRAL INFARCTION [None]
